FAERS Safety Report 9405380 (Version 1)
Quarter: 2013Q3

REPORT INFORMATION
  Report Type: Spontaneous
  Country: DK (occurrence: None)
  Receive Date: 20130715
  Receipt Date: 20130715
  Transmission Date: 20140515
  Serious: Yes (Hospitalization)
  Sender: FDA-Public Use
  Company Number: FK201302447

PATIENT
  Age: 32 Year
  Sex: Female

DRUGS (10)
  1. CARBOPLATIN (MANUFACTURER UNKNOWN) (CARBOPLATIN) (CARBOPLATIN) [Suspect]
     Indication: BREAST CANCER
     Route: 041
     Dates: start: 20130109
  2. ABRAXANE [Suspect]
     Indication: BREAST CANCER
     Route: 041
     Dates: start: 20130109
  3. ABT-888 [Suspect]
     Indication: BREAST CANCER
     Route: 048
     Dates: start: 20130107
  4. PARACETAMOL (PARACETAMOL) (PARACETAMOL) [Concomitant]
  5. IBUPROFEN (IBUPROFEN) (IBUPROFEN) [Concomitant]
  6. CLEMASTINE (CLEMASTINE, CLEMASTINE, CLEMASTINE) (CLEMASTINE, CLEMASTINE, CLEMASTINE) [Concomitant]
  7. RANITIDINE (RANITIDINE) (RANITIDINE) [Concomitant]
  8. METHYLPREDNISOLONE SODIUM SUCCINATE (METHYLPREDNISOLONE SODIUM SUCCINATE) (METHYLPREDNISOLONE SODIUM SUCCINATE) [Concomitant]
  9. ONDANSETRON (ONDANSETRON) (ONDANSETRON) [Concomitant]
  10. CYKLOKAPRON (TRANEXAMSYRE, TRANEXAMSYRE) (TRANEXAMSYRE, TRANEXAMSYRE) [Concomitant]

REACTIONS (3)
  - Lymphadenopathy [None]
  - Febrile neutropenia [None]
  - Haemoglobin decreased [None]
